FAERS Safety Report 7886128-2 (Version None)
Quarter: 2011Q4

REPORT INFORMATION
  Report Type: 
  Country: None (occurrence: None)
  Receive Date: 20111102
  Receipt Date: 20110630
  Transmission Date: 20120403
  Serious: No
  Sender: FDA-Public Use
  Company Number: US-AMGEN-TCS411352

PATIENT
  Age: 51 Year
  Sex: Male

DRUGS (1)
  1. ENBREL [Suspect]
     Indication: PSORIATIC ARTHROPATHY
     Dosage: 50 MG, QWK
     Route: 058
     Dates: start: 20091128

REACTIONS (7)
  - ANXIETY [None]
  - NECK PAIN [None]
  - MUSCULOSKELETAL PAIN [None]
  - BACK PAIN [None]
  - ASTHENIA [None]
  - ARTHRALGIA [None]
  - VOMITING [None]
